FAERS Safety Report 24169212 (Version 6)
Quarter: 2025Q1

REPORT INFORMATION
  Report Type: Spontaneous
  Country: GR (occurrence: GR)
  Receive Date: 20240802
  Receipt Date: 20250314
  Transmission Date: 20250409
  Serious: No
  Sender: PFIZER
  Company Number: GR-PFIZER INC-PV202400099103

PATIENT
  Age: 5 Year
  Sex: Female
  Weight: 16 kg

DRUGS (1)
  1. GENOTROPIN [Suspect]
     Active Substance: SOMATROPIN
     Indication: Dwarfism
     Dosage: 4 MG, WEEKLY
     Route: 058
     Dates: start: 202402

REACTIONS (1)
  - Device malfunction [Unknown]

NARRATIVE: CASE EVENT DATE: 20240728
